FAERS Safety Report 20690045 (Version 1)
Quarter: 2022Q2

REPORT INFORMATION
  Report Type: Report from Study
  Country: US (occurrence: US)
  Receive Date: 20220408
  Receipt Date: 20220408
  Transmission Date: 20220720
  Serious: Yes (Hospitalization, Other)
  Sender: FDA-Public Use
  Company Number: US-BIOGEN-2022BI01111516

PATIENT
  Sex: Female

DRUGS (2)
  1. TECFIDERA [Suspect]
     Active Substance: DIMETHYL FUMARATE
     Indication: Multiple sclerosis
     Route: 048
     Dates: start: 20150924
  2. TECFIDERA [Suspect]
     Active Substance: DIMETHYL FUMARATE
     Route: 048

REACTIONS (12)
  - Hallucination [Unknown]
  - Panic attack [Unknown]
  - Schizophrenia [Unknown]
  - Seizure [Unknown]
  - Multiple sclerosis relapse [Unknown]
  - Depression [Not Recovered/Not Resolved]
  - Muscular weakness [Unknown]
  - Amnesia [Not Recovered/Not Resolved]
  - Muscle atrophy [Not Recovered/Not Resolved]
  - Bipolar disorder [Unknown]
  - Prescribed underdose [Recovered/Resolved]
  - Product dose omission in error [Unknown]
